FAERS Safety Report 16368794 (Version 4)
Quarter: 2019Q4

REPORT INFORMATION
  Report Type: Spontaneous
  Country: US (occurrence: US)
  Receive Date: 20190529
  Receipt Date: 20191022
  Transmission Date: 20200122
  Serious: Yes (Hospitalization, Other)
  Sender: FDA-Public Use
  Company Number: US-PFIZER INC-2019228620

PATIENT
  Age: 67 Year
  Sex: Female
  Weight: 63.2 kg

DRUGS (2)
  1. IBRANCE [Suspect]
     Active Substance: PALBOCICLIB
     Indication: OESTROGEN RECEPTOR POSITIVE BREAST CANCER
     Dosage: 100 MG, CYCLIC (DAILY DAYS 1-21 REPEAT EVERY 28 DAYS)
     Dates: start: 20190522, end: 201908
  2. LETROZOLE. [Concomitant]
     Active Substance: LETROZOLE
     Indication: BREAST CANCER METASTATIC
     Dosage: 25 MG, DAILY
     Route: 048
     Dates: start: 20190522, end: 201908

REACTIONS (4)
  - White blood cell count decreased [Recovered/Resolved]
  - Blindness [Not Recovered/Not Resolved]
  - Neutropenia [Recovered/Resolved]
  - Neoplasm progression [Unknown]
